FAERS Safety Report 14410893 (Version 6)
Quarter: 2018Q2

REPORT INFORMATION
  Report Type: Report from Study
  Country: US (occurrence: US)
  Receive Date: 20180119
  Receipt Date: 20180607
  Transmission Date: 20180711
  Serious: Yes (Death, Hospitalization, Disabling, Other)
  Sender: FDA-Public Use
  Company Number: US-BAYER-2018-001645

PATIENT
  Age: 83 Year
  Sex: Female

DRUGS (4)
  1. STIVARGA [Suspect]
     Active Substance: REGORAFENIB
     Indication: COLORECTAL CANCER
     Dosage: 40 MG DAILY 3 WEEKS ON/ ONE WEEK OFF
     Route: 048
     Dates: start: 201803, end: 20180601
  2. STIVARGA [Suspect]
     Active Substance: REGORAFENIB
     Indication: COLORECTAL CANCER
     Dosage: 40 MG, QD
     Route: 048
     Dates: start: 20171230
  3. STIVARGA [Suspect]
     Active Substance: REGORAFENIB
     Indication: COLON CANCER
     Dosage: 40 MG DAILY 3 WEEKS ON 1 WEEK OFF
     Route: 048
     Dates: start: 20180101, end: 20180107
  4. STIVARGA [Suspect]
     Active Substance: REGORAFENIB
     Indication: COLORECTAL CANCER
     Dosage: 40 MG, QOD 21 DAYS ON/ 7 DAYS OFF
     Route: 048
     Dates: start: 20180201, end: 201803

REACTIONS (18)
  - Decreased appetite [None]
  - Fatigue [None]
  - Sluggishness [None]
  - Disorientation [Recovered/Resolved]
  - Communication disorder [Recovered/Resolved]
  - Blood pressure increased [Recovering/Resolving]
  - Loss of personal independence in daily activities [None]
  - Glassy eyes [Recovered/Resolved]
  - Confusional state [None]
  - Death [Fatal]
  - Hypertension [Recovered/Resolved]
  - Decreased appetite [None]
  - Off label use [None]
  - Colorectal cancer [Not Recovered/Not Resolved]
  - Tumour marker increased [None]
  - Hypophagia [None]
  - Bedridden [None]
  - Rectal discharge [Recovering/Resolving]

NARRATIVE: CASE EVENT DATE: 2018
